FAERS Safety Report 13410658 (Version 4)
Quarter: 2019Q3

REPORT INFORMATION
  Report Type: Spontaneous
  Country: US (occurrence: US)
  Receive Date: 20170406
  Receipt Date: 20190726
  Transmission Date: 20191004
  Serious: No
  Sender: FDA-Public Use
  Company Number: US-JNJFOC-20170300073

PATIENT
  Age: 15 Year
  Sex: Male

DRUGS (3)
  1. RISPERIDONE. [Suspect]
     Active Substance: RISPERIDONE
     Indication: INSOMNIA
  2. RISPERIDONE. [Suspect]
     Active Substance: RISPERIDONE
     Indication: ATTENTION DEFICIT/HYPERACTIVITY DISORDER
     Dosage: VARYING DOSES OF 0.25 MG, 1 MG AND 2 MG
     Route: 048
     Dates: start: 20021107, end: 20071025
  3. RISPERIDONE. [Suspect]
     Active Substance: RISPERIDONE
     Indication: BIPOLAR DISORDER

REACTIONS (4)
  - Gynaecomastia [Unknown]
  - Drug ineffective [Unknown]
  - Emotional distress [Unknown]
  - Therapy cessation [Unknown]

NARRATIVE: CASE EVENT DATE: 200710
